FAERS Safety Report 9178092 (Version 1)
Quarter: 2013Q1

REPORT INFORMATION
  Report Type: Spontaneous
  Country: MX (occurrence: MX)
  Receive Date: 20130321
  Receipt Date: 20130321
  Transmission Date: 20140127
  Serious: Yes (Hospitalization)
  Sender: FDA-Public Use
  Company Number: PHHY2013MX027756

PATIENT
  Age: 6 Year
  Sex: Female

DRUGS (2)
  1. TRILEPTAL [Suspect]
     Dosage: 2 DOSES (6 G/100 ML)
     Route: 048
     Dates: start: 20120216
  2. RISPERIDONE [Concomitant]
     Dosage: DAILYDRP, UNK
     Dates: start: 201202

REACTIONS (2)
  - Pharyngitis [Recovered/Resolved]
  - Gastric infection [Recovered/Resolved]
